FAERS Safety Report 18355939 (Version 2)
Quarter: 2020Q4

REPORT INFORMATION
  Report Type: Spontaneous
  Country: CR (occurrence: CR)
  Receive Date: 20201007
  Receipt Date: 20201012
  Transmission Date: 20210114
  Serious: Yes (Other)
  Sender: FDA-Public Use
  Company Number: CR-PFIZER INC-2020382992

PATIENT
  Age: 79 Year
  Sex: Female

DRUGS (1)
  1. PRISTIQ EXTENDED-RELEASE [Suspect]
     Active Substance: DESVENLAFAXINE SUCCINATE
     Dosage: UNK

REACTIONS (12)
  - Blood glucose increased [Unknown]
  - Weight decreased [Unknown]
  - Abdominal pain upper [Unknown]
  - Colitis [Unknown]
  - Underweight [Unknown]
  - Oesophageal pain [Unknown]
  - Back pain [Unknown]
  - Neoplasm malignant [Unknown]
  - Decreased appetite [Unknown]
  - Cholelithiasis [Unknown]
  - Diarrhoea [Unknown]
  - Constipation [Unknown]
